FAERS Safety Report 25753291 (Version 1)
Quarter: 2025Q3

REPORT INFORMATION
  Report Type: Spontaneous
  Country: CH (occurrence: None)
  Receive Date: 20250903
  Receipt Date: 20250903
  Transmission Date: 20251020
  Serious: Yes (Death, Other)
  Sender: ENCUBE ETHICALS PVT. LTD.
  Company Number: CH-Encube-002211

PATIENT
  Age: 38 Year
  Sex: Male

DRUGS (6)
  1. TESTOSTERONE [Suspect]
     Active Substance: TESTOSTERONE
     Indication: Substance use
     Dosage: INJECTION
  2. NANDROLONE PHENPROPIONATE [Suspect]
     Active Substance: NANDROLONE PHENPROPIONATE
     Indication: Substance use
  3. RILPIVIRINE [Concomitant]
     Active Substance: RILPIVIRINE
     Indication: Antiretroviral therapy
  4. TENOFOVIR ALAFENAMIDE [Concomitant]
     Active Substance: TENOFOVIR ALAFENAMIDE
     Indication: Antiretroviral therapy
  5. EMTRICITABINE [Concomitant]
     Active Substance: EMTRICITABINE
     Indication: Antiretroviral therapy
  6. INSULIN NOS [Concomitant]
     Active Substance: INSULIN NOS

REACTIONS (17)
  - Toxic cardiomyopathy [Fatal]
  - Polycythaemia [Fatal]
  - Hypogonadism [Unknown]
  - Pulmonary embolism [Fatal]
  - Dyspnoea [Unknown]
  - Dizziness [Recovering/Resolving]
  - Palpitations [Unknown]
  - Alopecia [Unknown]
  - Off label use [Unknown]
  - Drug dependence [Unknown]
  - Hypertension [Recovering/Resolving]
  - Obstructive sleep apnoea syndrome [Unknown]
  - Headache [Unknown]
  - Withdrawal syndrome [Recovered/Resolved]
  - Splenomegaly [Unknown]
  - Skin irritation [Recovered/Resolved]
  - Hyperhidrosis [Unknown]
